FAERS Safety Report 13260528 (Version 1)
Quarter: 2017Q1

REPORT INFORMATION
  Report Type: Spontaneous
  Country: US (occurrence: US)
  Receive Date: 20170222
  Receipt Date: 20170222
  Transmission Date: 20170428
  Serious: No
  Sender: FDA-Public Use
  Company Number: US-VERNALIS THERAPEUTICS, INC.-2017VRN00003

PATIENT
  Sex: Female

DRUGS (1)
  1. TUZISTRA XR [Suspect]
     Active Substance: CHLORPHENIRAMINE MALEATE\CODEINE PHOSPHATE ANHYDROUS
     Dosage: UNK, 2X/DAY

REACTIONS (2)
  - Somnolence [Unknown]
  - Dizziness [Unknown]
